FAERS Safety Report 24665479 (Version 1)
Quarter: 2024Q4

REPORT INFORMATION
  Report Type: Spontaneous
  Country: FR (occurrence: FR)
  Receive Date: 20241126
  Receipt Date: 20241126
  Transmission Date: 20250115
  Serious: Yes (Life-Threatening)
  Sender: TEVA
  Company Number: None

PATIENT
  Age: 63 Year
  Sex: Female
  Weight: 49 kg

DRUGS (2)
  1. DIAZEPAM [Suspect]
     Active Substance: DIAZEPAM
     Indication: Procedural pain
     Route: 048
     Dates: start: 20241015, end: 20241020
  2. MORPHINE [Suspect]
     Active Substance: MORPHINE
     Indication: Procedural pain
     Route: 048
     Dates: start: 20241013, end: 20241020

REACTIONS (2)
  - Coma [Recovered/Resolved]
  - Overdose [Recovered/Resolved]

NARRATIVE: CASE EVENT DATE: 20241022
